FAERS Safety Report 23455050 (Version 2)
Quarter: 2024Q1

REPORT INFORMATION
  Report Type: Report from Study
  Country: US (occurrence: None)
  Receive Date: 20240130
  Receipt Date: 20240301
  Transmission Date: 20240410
  Serious: Yes (Death)
  Sender: FDA-Public Use
  Company Number: 2024A020510

PATIENT
  Age: 79 Year
  Sex: Female
  Weight: 55.3 kg

DRUGS (1)
  1. FARXIGA [Suspect]
     Active Substance: DAPAGLIFLOZIN PROPANEDIOL
     Indication: Chronic kidney disease
     Dosage: 10.0MG UNKNOWN
     Route: 048
     Dates: start: 20230208, end: 20231207

REACTIONS (1)
  - Death [Fatal]

NARRATIVE: CASE EVENT DATE: 20231207
